FAERS Safety Report 5384793-5 (Version None)
Quarter: 2007Q3

REPORT INFORMATION
  Report Type: 
  Country: None (occurrence: None)
  Receive Date: 20070706
  Receipt Date: 20070531
  Transmission Date: 20080115
  Serious: No
  Sender: FDA-Public Use
  Company Number: PHEH2007US07513

PATIENT
  Age: 81 Year
  Sex: Male

DRUGS (2)
  1. TEKTURNA [Suspect]
     Dosage: 150 MG, QD, ORAL
     Route: 048
  2. ALLOPURINOL [Suspect]

REACTIONS (5)
  - ABDOMINAL PAIN UPPER [None]
  - CHROMATURIA [None]
  - DIARRHOEA [None]
  - RASH PRURITIC [None]
  - URINE ABNORMALITY [None]
